FAERS Safety Report 6927761-1 (Version None)
Quarter: 2010Q3

REPORT INFORMATION
  Report Type: 
  Country: None (occurrence: None)
  Receive Date: 20100817
  Receipt Date: 20100809
  Transmission Date: 20110219
  Serious: Yes (Death)
  Sender: FDA-Public Use
  Company Number: JP-AMGEN-QUU430205

PATIENT
  Sex: Male
  Weight: 64 kg

DRUGS (8)
  1. ENBREL [Suspect]
     Indication: RHEUMATOID ARTHRITIS
     Dosage: LYOPHILIZED; 25 MG 2 X PER WEEK
     Route: 058
     Dates: start: 20080620, end: 20080630
  2. ENBREL [Suspect]
     Dosage: SOLUTION FOR INJECTION; 25 MG 2 X PER WEEK
     Route: 058
     Dates: start: 20080701, end: 20091113
  3. BENET [Concomitant]
     Dosage: DOSE NOT PROVIDED
     Route: 048
  4. FOLIAMIN [Concomitant]
     Dosage: DOSE NOT PROVIDED
     Route: 048
  5. PREDNISOLONE [Concomitant]
     Indication: RHEUMATOID ARTHRITIS
     Route: 048
     Dates: start: 20080312, end: 20080918
  6. PREDNISOLONE [Concomitant]
     Route: 048
     Dates: start: 20080919, end: 20091113
  7. METHOTREXATE [Concomitant]
     Indication: RHEUMATOID ARTHRITIS
     Route: 048
     Dates: start: 20080312, end: 20090625
  8. METHOTREXATE [Concomitant]
     Route: 048
     Dates: start: 20090626, end: 20091113

REACTIONS (1)
  - DEATH [None]
